FAERS Safety Report 17020572 (Version 2)
Quarter: 2019Q4

REPORT INFORMATION
  Report Type: Spontaneous
  Country: PL (occurrence: PL)
  Receive Date: 20191112
  Receipt Date: 20191119
  Transmission Date: 20200122
  Serious: Yes (Other)
  Sender: FDA-Public Use
  Company Number: PL-GILEAD-2019-0436885

PATIENT
  Age: 33 Year
  Sex: Female
  Weight: 47 kg

DRUGS (2)
  1. DARUNAVIR;RITONAVIR [Suspect]
     Active Substance: DARUNAVIR\RITONAVIR
     Indication: HIV INFECTION
     Dosage: 600/100
     Route: 048
     Dates: start: 20190212
  2. TRUVADA [Suspect]
     Active Substance: EMTRICITABINE\TENOFOVIR DISOPROXIL FUMARATE
     Indication: HIV INFECTION
     Dosage: 200/245
     Route: 048
     Dates: start: 20190212

REACTIONS (4)
  - Maternal exposure during pregnancy [Recovered/Resolved]
  - Mental disorder [Unknown]
  - Diarrhoea [Not Recovered/Not Resolved]
  - Abortion spontaneous [Recovered/Resolved]

NARRATIVE: CASE EVENT DATE: 20190212
